FAERS Safety Report 9357482 (Version 2)
Quarter: 2013Q3

REPORT INFORMATION
  Report Type: Spontaneous
  Country: US (occurrence: US)
  Receive Date: 20130620
  Receipt Date: 20130808
  Transmission Date: 20140515
  Serious: Yes (Hospitalization, Other)
  Sender: FDA-Public Use
  Company Number: PHEH2013US013149

PATIENT
  Age: 79 Year
  Sex: Female

DRUGS (3)
  1. CLOZARIL [Suspect]
     Indication: BIPOLAR I DISORDER
     Dosage: 25 MG, BID
     Route: 048
     Dates: start: 20130615, end: 20130616
  2. ATIVAN [Concomitant]
     Dosage: 1.5 MG, DAILY (0.5 MG 9 AM AND 1 MG QHS)
     Route: 048
     Dates: start: 20130529, end: 20130615
  3. LATUDA [Concomitant]
     Dosage: 20 MG, DAILY
     Route: 048
     Dates: start: 20130318, end: 20130615

REACTIONS (6)
  - Fall [Unknown]
  - Cough [Unknown]
  - Delirium [Recovered/Resolved]
  - Confusional state [Recovered/Resolved]
  - Aggression [Recovered/Resolved]
  - Abnormal dreams [Recovered/Resolved]
